FAERS Safety Report 15441215 (Version 1)
Quarter: 2018Q3

REPORT INFORMATION
  Report Type: Spontaneous
  Country: DE (occurrence: DE)
  Receive Date: 20180928
  Receipt Date: 20180928
  Transmission Date: 20181010
  Serious: Yes (Hospitalization, Other)
  Sender: FDA-Public Use
  Company Number: DE-GUERBET-DE-20180103

PATIENT
  Age: 38 Year
  Sex: Female

DRUGS (1)
  1. DOTAREM [Suspect]
     Active Substance: GADOTERATE MEGLUMINE
     Indication: NUCLEAR MAGNETIC RESONANCE IMAGING
     Route: 065
     Dates: start: 20180913, end: 20180913

REACTIONS (6)
  - Respiratory distress [Unknown]
  - Pruritus [Unknown]
  - Extrasystoles [Unknown]
  - Tachycardia [Unknown]
  - Tremor [Unknown]
  - Flushing [Unknown]

NARRATIVE: CASE EVENT DATE: 20180913
